FAERS Safety Report 23529663 (Version 1)
Quarter: 2024Q1

REPORT INFORMATION
  Report Type: Spontaneous
  Country: CA (occurrence: CA)
  Receive Date: 20240216
  Receipt Date: 20240216
  Transmission Date: 20240410
  Serious: Yes (Death, Other)
  Sender: FDA-Public Use
  Company Number: CA-ORG100014127-2024000045

PATIENT
  Age: 34 Year
  Sex: Male

DRUGS (1)
  1. LYSODREN [Suspect]
     Active Substance: MITOTANE
     Indication: Adrenocortical carcinoma
     Dosage: 500MG THREE TIMES DAILY
     Route: 048
     Dates: start: 20231208, end: 2024

REACTIONS (2)
  - Sepsis [Fatal]
  - Streptococcal infection [Fatal]

NARRATIVE: CASE EVENT DATE: 20240101
